FAERS Safety Report 8405987-8 (Version None)
Quarter: 2012Q2

REPORT INFORMATION
  Report Type: 
  Country: None (occurrence: None)
  Receive Date: 20120604
  Receipt Date: 20120527
  Transmission Date: 20120825
  Serious: Yes (Life-Threatening, Hospitalization, Disabling)
  Sender: FDA-Public Use
  Company Number: ES-US-EMD SERONO, INC.-7131613

PATIENT
  Age: 60 Year
  Sex: Male
  Weight: 70 kg

DRUGS (2)
  1. REBIF [Suspect]
     Route: 058
     Dates: start: 20110429, end: 20110715
  2. REBIF [Suspect]
     Indication: RELAPSING-REMITTING MULTIPLE SCLEROSIS
     Route: 058
     Dates: start: 20110214, end: 20110429

REACTIONS (5)
  - ASTHENIA [None]
  - DISTURBANCE IN ATTENTION [None]
  - DRUG INTOLERANCE [None]
  - HAEMATURIA [None]
  - TRANSITIONAL CELL CARCINOMA [None]
